FAERS Safety Report 19576936 (Version 1)
Quarter: 2021Q3

REPORT INFORMATION
  Report Type: Spontaneous
  Country: US (occurrence: US)
  Receive Date: 20210719
  Receipt Date: 20210719
  Transmission Date: 20211014
  Serious: No
  Sender: FDA-Public Use
  Company Number: US-GLENMARK PHARMACEUTICALS-2020GMK048566

PATIENT

DRUGS (1)
  1. MUPIROCIN OINTMENT USP, 2% [Suspect]
     Active Substance: MUPIROCIN
     Indication: ARTHROPOD BITE
     Dosage: UNK
     Route: 061
     Dates: start: 2020

REACTIONS (6)
  - Application site pruritus [Unknown]
  - Application site pain [Unknown]
  - Application site warmth [Unknown]
  - Application site swelling [Unknown]
  - Application site erythema [Unknown]
  - Product use in unapproved indication [Unknown]

NARRATIVE: CASE EVENT DATE: 2020
